FAERS Safety Report 9265512 (Version 1)
Quarter: 2013Q2

REPORT INFORMATION
  Report Type: Report from Study
  Country: IL (occurrence: IL)
  Receive Date: 20130501
  Receipt Date: 20130501
  Transmission Date: 20140414
  Serious: Yes (Death)
  Sender: FDA-Public Use
  Company Number: IL-ASTRAZENECA-2013SE26284

PATIENT
  Age: 24187 Day
  Sex: Male
  Weight: 64 kg

DRUGS (2)
  1. MEROPENEM [Suspect]
     Indication: BACTERIAL INFECTION
     Route: 042
     Dates: start: 20130410, end: 20130415
  2. CEFTAZIDIME+NXL104 [Suspect]
     Indication: BACTERIAL INFECTION
     Route: 042

REACTIONS (1)
  - Death [Fatal]
